FAERS Safety Report 9669930 (Version 1)
Quarter: 2013Q4

REPORT INFORMATION
  Report Type: Spontaneous
  Country: US (occurrence: None)
  Receive Date: 20131104
  Receipt Date: 20131104
  Transmission Date: 20140711
  Serious: Yes (Other)
  Sender: FDA-Public Use
  Company Number: 2013SA111178

PATIENT
  Age: 45 Year
  Sex: Male

DRUGS (1)
  1. CAPZASIN HP CREME [Suspect]
     Indication: BACK DISORDER
     Route: 061

REACTIONS (1)
  - Application site burn [None]
